FAERS Safety Report 18330602 (Version 1)
Quarter: 2020Q3

REPORT INFORMATION
  Report Type: Spontaneous
  Country: MX (occurrence: MX)
  Receive Date: 20200930
  Receipt Date: 20200930
  Transmission Date: 20201103
  Serious: Yes (Other)
  Sender: FDA-Public Use
  Company Number: MX-BAYER-2020-206057

PATIENT
  Age: 35 Year
  Sex: Female
  Weight: 48 kg

DRUGS (2)
  1. YASMIN [Suspect]
     Active Substance: DROSPIRENONE\ETHINYL ESTRADIOL
     Indication: OVARIAN CYST
     Dosage: UNK
     Route: 048
     Dates: start: 202007, end: 20200913
  2. SERTRALINE [Concomitant]
     Active Substance: SERTRALINE HYDROCHLORIDE
     Indication: ANXIETY

REACTIONS (13)
  - Dizziness [None]
  - Vomiting [None]
  - Asthenia [None]
  - Vision blurred [None]
  - Cold sweat [None]
  - Migraine [None]
  - Hypoaesthesia [None]
  - Syncope [None]
  - Off label use [None]
  - Product use in unapproved indication [None]
  - Headache [None]
  - Mobility decreased [None]
  - Epistaxis [None]

NARRATIVE: CASE EVENT DATE: 20200918
